FAERS Safety Report 23658934 (Version 3)
Quarter: 2024Q2

REPORT INFORMATION
  Report Type: Spontaneous
  Country: US (occurrence: US)
  Receive Date: 20240321
  Receipt Date: 20240405
  Transmission Date: 20240715
  Serious: Yes (Hospitalization)
  Sender: FDA-Public Use
  Company Number: US-AMGEN-USASP2024053599

PATIENT
  Age: 5 Year
  Sex: Male
  Weight: 18.866 kg

DRUGS (1)
  1. BLINCYTO [Suspect]
     Active Substance: BLINATUMOMAB
     Indication: Acute lymphocytic leukaemia recurrent
     Dosage: UNK, (2 VIALS OF 35 MCG)
     Route: 065
     Dates: start: 20230509

REACTIONS (1)
  - White blood cell count increased [Unknown]
